FAERS Safety Report 5768887-8 (Version None)
Quarter: 2008Q2

REPORT INFORMATION
  Report Type: 
  Country: None (occurrence: None)
  Receive Date: 20080610
  Receipt Date: 20080529
  Transmission Date: 20081010
  Serious: Yes (Other)
  Sender: FDA-Public Use
  Company Number: 2008AP000267

PATIENT
  Age: 42 Year
  Sex: Female

DRUGS (8)
  1. PAROXETINE HCL [Suspect]
     Indication: DEPRESSION
     Dosage: 20 MG; PO; QD; 30 MG; PO; QD; 20 MG; PO; QD; PO
     Route: 048
     Dates: end: 19980101
  2. PAROXETINE HCL [Suspect]
     Indication: DEPRESSION
     Dosage: 20 MG; PO; QD; 30 MG; PO; QD; 20 MG; PO; QD; PO
     Route: 048
     Dates: start: 19960902
  3. PAROXETINE HCL [Suspect]
     Indication: DEPRESSION
     Dosage: 20 MG; PO; QD; 30 MG; PO; QD; 20 MG; PO; QD; PO
     Route: 048
     Dates: start: 19970908
  4. PAROXETINE HCL [Suspect]
     Indication: DEPRESSION
     Dosage: 20 MG; PO; QD; 30 MG; PO; QD; 20 MG; PO; QD; PO
     Route: 048
     Dates: start: 19980513
  5. PAROXETINE HCL [Suspect]
     Indication: DEPRESSION
     Dosage: 20 MG; PO; QD; 30 MG; PO; QD; 20 MG; PO; QD; PO
     Route: 048
     Dates: start: 20041018
  6. LEVOTHYROXINE SODIUM [Concomitant]
  7. ESTRADIOL VALERATE (ESTRADIOL VALERATE) [Concomitant]
  8. ESTRADIOL [Concomitant]

REACTIONS (12)
  - ANGER [None]
  - ANXIETY [None]
  - DISSOCIATION [None]
  - DISTURBANCE IN ATTENTION [None]
  - DIZZINESS [None]
  - DRUG WITHDRAWAL SYNDROME [None]
  - HEADACHE [None]
  - LETHARGY [None]
  - MEMORY IMPAIRMENT [None]
  - MOOD ALTERED [None]
  - NAUSEA [None]
  - SUICIDAL IDEATION [None]
